FAERS Safety Report 10649133 (Version 1)
Quarter: 2014Q4

REPORT INFORMATION
  Report Type: Spontaneous
  Country: FR (occurrence: None)
  Receive Date: 20141210
  Receipt Date: 20141210
  Transmission Date: 20150529
  Serious: Yes (Hospitalization)
  Sender: FDA-Public Use
  Company Number: FR-017954

PATIENT
  Age: 87 Year
  Sex: Female

DRUGS (1)
  1. MINIRIN [Suspect]
     Active Substance: DESMOPRESSIN ACETATE
     Indication: DIABETES INSIPIDUS
     Route: 045

REACTIONS (2)
  - Injury [None]
  - Hyponatraemia [None]

NARRATIVE: CASE EVENT DATE: 2014
